FAERS Safety Report 10010111 (Version 1)
Quarter: 2014Q1

REPORT INFORMATION
  Report Type: Spontaneous
  Country: US (occurrence: US)
  Receive Date: 20140312
  Receipt Date: 20140312
  Transmission Date: 20141002
  Serious: No
  Sender: FDA-Public Use
  Company Number: US-INCYTE CORPORATION-2013IN001197

PATIENT
  Age: 60 Year
  Sex: Male

DRUGS (8)
  1. JAKAFI [Suspect]
     Indication: MYELOFIBROSIS
     Dosage: 15 MG, BID
     Route: 048
     Dates: start: 201305
  2. DIAZEPAM [Concomitant]
  3. ASPIRIN [Concomitant]
  4. PLAVIX [Concomitant]
  5. LEVOTHYROXINE [Concomitant]
  6. FISH OIL [Concomitant]
  7. HYDROXYUREA [Concomitant]
  8. HYDROCODONE [Concomitant]

REACTIONS (1)
  - Flatulence [Unknown]
